FAERS Safety Report 5535834-3 (Version None)
Quarter: 2007Q4

REPORT INFORMATION
  Report Type: 
  Country: None (occurrence: None)
  Receive Date: 20071204
  Receipt Date: 20071204
  Transmission Date: 20080405
  Serious: Yes (Life-Threatening, Hospitalization)
  Sender: FDA-Public Use
  Company Number: None

PATIENT
  Age: 46 Year
  Sex: Female
  Weight: 74.8435 kg

DRUGS (1)
  1. OVCON-35 [Suspect]
     Indication: MENSTRUATION IRREGULAR
     Dosage: 0.4  28 D REGIMEN  PO
     Route: 048
     Dates: start: 20051230, end: 20060825

REACTIONS (2)
  - DEEP VEIN THROMBOSIS [None]
  - PULMONARY EMBOLISM [None]
